FAERS Safety Report 9701924 (Version 1)
Quarter: 2013Q4

REPORT INFORMATION
  Report Type: Spontaneous
  Country: CN (occurrence: None)
  Receive Date: 20131120
  Receipt Date: 20131120
  Transmission Date: 20140711
  Serious: Yes (Death, Hospitalization, Other)
  Sender: FDA-Public Use
  Company Number: 152114

PATIENT
  Age: 59 Year
  Sex: Male

DRUGS (3)
  1. CISPLATIN [Suspect]
     Indication: ANGIOSARCOMA
     Dosage: 70MG/M2 (120 MG) I.V. D2, EVERY 21 DAYS
     Route: 042
  2. PACLITAXEL [Suspect]
     Indication: ANGIOSARCOMA
     Dosage: 150 MG/M2 (270 MG) I.V. D1 EVERY 2
     Route: 042
  3. EPIRUBICIN HCL [Suspect]
     Indication: ANGIOSARCOMA
     Dosage: 30MG/M2 I.V. D1-2 EVERY 21 DAYS
     Route: 042

REACTIONS (2)
  - Bone marrow failure [None]
  - Pulmonary embolism [None]
